FAERS Safety Report 23786056 (Version 1)
Quarter: 2024Q2

REPORT INFORMATION
  Report Type: Spontaneous
  Country: GB (occurrence: GB)
  Receive Date: 20240426
  Receipt Date: 20240426
  Transmission Date: 20240715
  Serious: Yes (Hospitalization, Other)
  Sender: FDA-Public Use
  Company Number: GB-TAKEDA-2024TUS038187

PATIENT
  Age: 64 Year
  Sex: Female

DRUGS (6)
  1. CARBAMAZEPINE [Suspect]
     Active Substance: CARBAMAZEPINE
     Indication: Epilepsy
     Dosage: UNK
     Route: 065
  2. CLARITHROMYCIN [Concomitant]
     Active Substance: CLARITHROMYCIN
     Indication: Influenza like illness
     Dosage: UNK
     Route: 065
  3. CLARITHROMYCIN [Concomitant]
     Active Substance: CLARITHROMYCIN
     Indication: Wheezing
  4. FUROSEMIDE [Concomitant]
     Active Substance: FUROSEMIDE
     Indication: Wheezing
     Dosage: UNK
     Route: 065
  5. FUROSEMIDE [Concomitant]
     Active Substance: FUROSEMIDE
     Indication: Influenza like illness
  6. LEVETIRACETAM [Concomitant]
     Active Substance: LEVETIRACETAM
     Indication: Epilepsy
     Dosage: UNK
     Route: 065

REACTIONS (8)
  - Romberg test positive [Unknown]
  - Toxicity to various agents [Unknown]
  - Blood sodium decreased [Unknown]
  - Dysarthria [Unknown]
  - Dizziness [Unknown]
  - Confusional state [Unknown]
  - Ataxia [Unknown]
  - Drug interaction [Unknown]
